FAERS Safety Report 8509449-9 (Version None)
Quarter: 2012Q3

REPORT INFORMATION
  Report Type: 
  Country: None (occurrence: None)
  Receive Date: 20120713
  Receipt Date: 20120709
  Transmission Date: 20120928
  Serious: Yes (Death, Life-Threatening)
  Sender: FDA-Public Use
  Company Number: CA-ASTRAZENECA-2012SE38774

PATIENT
  Age: 65 Year
  Sex: Male

DRUGS (6)
  1. ZOLADEX [Suspect]
     Route: 058
     Dates: start: 20120415
  2. ZOLADEX [Suspect]
     Indication: PROSTATE CANCER
     Route: 058
     Dates: start: 20050204
  3. ZOLADEX [Suspect]
     Route: 058
     Dates: start: 20110110
  4. ZOLADEX [Suspect]
     Route: 058
     Dates: start: 20110408
  5. ZOLADEX [Suspect]
     Route: 058
     Dates: start: 20111011
  6. ZOLADEX [Suspect]
     Route: 058
     Dates: start: 20120113

REACTIONS (1)
  - NEOPLASM PROGRESSION [None]
